FAERS Safety Report 25920578 (Version 1)
Quarter: 2025Q4

REPORT INFORMATION
  Report Type: Spontaneous
  Country: US (occurrence: US)
  Receive Date: 20251014
  Receipt Date: 20251014
  Transmission Date: 20260117
  Serious: Yes (Other)
  Sender: SK LIFE SCIENCE
  Company Number: US-SK LIFE SCIENCE, INC.-SKPVG-2025-002123

PATIENT

DRUGS (8)
  1. XCOPRI [Suspect]
     Active Substance: CENOBAMATE
     Indication: Seizure
     Dosage: UNK
     Route: 065
  2. DAYBUE [Concomitant]
     Active Substance: TROFINETIDE
     Indication: Rett syndrome
     Dosage: 32 MILLILITER, TID
     Dates: start: 202307
  3. DAYBUE [Concomitant]
     Active Substance: TROFINETIDE
     Dosage: 40 MILLILITER, BID
     Route: 065
     Dates: start: 20250809
  4. DAYBUE [Concomitant]
     Active Substance: TROFINETIDE
     Dosage: 50 MILLILITER, BID
  5. DAYBUE [Concomitant]
     Active Substance: TROFINETIDE
     Dosage: 28 MILLILITER, TID
  6. CLOBAZAM [Concomitant]
     Active Substance: CLOBAZAM
     Indication: Product used for unknown indication
     Dosage: UNK
     Route: 065
  7. BACLOFEN [Concomitant]
     Active Substance: BACLOFEN
     Indication: Product used for unknown indication
     Dosage: UNK
     Route: 065
  8. MEPHOBARBITAL [Concomitant]
     Active Substance: MEPHOBARBITAL
     Indication: Product used for unknown indication
     Dosage: UNK
     Route: 065

REACTIONS (8)
  - Seizure [Not Recovered/Not Resolved]
  - Moaning [Not Recovered/Not Resolved]
  - Faeces soft [Not Recovered/Not Resolved]
  - Weight increased [Not Recovered/Not Resolved]
  - Fatigue [Not Recovered/Not Resolved]
  - Dizziness [Not Recovered/Not Resolved]
  - Hypersomnia [Not Recovered/Not Resolved]
  - Diarrhoea [Not Recovered/Not Resolved]

NARRATIVE: CASE EVENT DATE: 20250814
